FAERS Safety Report 9770356 (Version 2)
Quarter: 2014Q1

REPORT INFORMATION
  Report Type: Report from Study
  Country: CA (occurrence: CA)
  Receive Date: 20131218
  Receipt Date: 20140123
  Transmission Date: 20141002
  Serious: Yes (Hospitalization, Other)
  Sender: FDA-Public Use
  Company Number: CA-ABBVIE-13P-028-1180095-00

PATIENT
  Age: 56 Year
  Sex: Male
  Weight: 57 kg

DRUGS (10)
  1. HUMIRA [Suspect]
     Indication: PSORIASIS
     Route: 058
     Dates: start: 20130301, end: 20131201
  2. METHOTREXATE [Suspect]
     Indication: PRODUCT USED FOR UNKNOWN INDICATION
     Dosage: DOSAGE DECREASED
     Dates: end: 201312
  3. METHOTREXATE [Suspect]
     Dates: start: 201312
  4. STEROID [Suspect]
     Indication: PRODUCT USED FOR UNKNOWN INDICATION
     Dates: end: 201311
  5. CILAZAPRIL [Suspect]
     Indication: PRODUCT USED FOR UNKNOWN INDICATION
     Dates: end: 201312
  6. SIMVASTATIN [Suspect]
     Indication: PRODUCT USED FOR UNKNOWN INDICATION
     Dates: end: 201312
  7. ASPIRIN [Concomitant]
     Indication: PRODUCT USED FOR UNKNOWN INDICATION
  8. DOXYCYCLINE [Concomitant]
     Indication: PRODUCT USED FOR UNKNOWN INDICATION
  9. FOLIC ACID [Concomitant]
     Indication: PRODUCT USED FOR UNKNOWN INDICATION
  10. METFORMIN [Concomitant]
     Indication: PRODUCT USED FOR UNKNOWN INDICATION

REACTIONS (14)
  - Adrenal insufficiency [Recovering/Resolving]
  - Chills [Unknown]
  - Pyrexia [Recovering/Resolving]
  - Infection [Unknown]
  - Dermatitis exfoliative [Unknown]
  - Hepatic enzyme increased [Unknown]
  - Tremor [Unknown]
  - Diarrhoea [Recovered/Resolved]
  - Chills [Unknown]
  - Psoriasis [Unknown]
  - Hypomagnesaemia [Unknown]
  - Cushingoid [Unknown]
  - Colitis [Unknown]
  - Spinal disorder [Unknown]
